FAERS Safety Report 24108361 (Version 2)
Quarter: 2025Q1

REPORT INFORMATION
  Report Type: Spontaneous
  Country: GB (occurrence: GB)
  Receive Date: 20240718
  Receipt Date: 20250126
  Transmission Date: 20250409
  Serious: Yes (Disabling, Other)
  Sender: CIPLA
  Company Number: GB-MHRA-MED-202405071428426630-ZQHTY

PATIENT

DRUGS (6)
  1. FINASTERIDE [Suspect]
     Active Substance: FINASTERIDE
     Indication: Benign prostatic hyperplasia
     Route: 065
     Dates: start: 2010
  2. AMLODIPINE [Concomitant]
     Active Substance: AMLODIPINE BESYLATE
     Indication: Product used for unknown indication
     Route: 065
  3. ATORVASTATIN [Concomitant]
     Active Substance: ATORVASTATIN
     Indication: Product used for unknown indication
     Route: 065
  4. OMEPRAZOLE [Concomitant]
     Active Substance: OMEPRAZOLE
     Indication: Product used for unknown indication
     Route: 065
  5. RAMIPRIL [Concomitant]
     Active Substance: RAMIPRIL
     Indication: Product used for unknown indication
     Route: 065
  6. SERTRALINE [Concomitant]
     Active Substance: SERTRALINE HYDROCHLORIDE
     Indication: Product used for unknown indication
     Route: 065

REACTIONS (3)
  - Loss of libido [Not Recovered/Not Resolved]
  - Depressed mood [Not Recovered/Not Resolved]
  - Erectile dysfunction [Not Recovered/Not Resolved]
